FAERS Safety Report 11821951 (Version 2)
Quarter: 2016Q3

REPORT INFORMATION
  Report Type: Spontaneous
  Country: US (occurrence: US)
  Receive Date: 20151210
  Receipt Date: 20160725
  Transmission Date: 20161109
  Serious: No
  Sender: FDA-Public Use
  Company Number: US-JNJFOC-20150723008

PATIENT
  Age: 75 Year
  Sex: Male

DRUGS (10)
  1. IMBRUVICA [Suspect]
     Active Substance: IBRUTINIB
     Indication: LYMPHOMA
     Route: 048
     Dates: start: 20150528
  2. CALCIUM [Concomitant]
     Active Substance: CALCIUM
  3. MAGNESIUM [Concomitant]
     Active Substance: MAGNESIUM
  4. VITAMIN A [Concomitant]
     Active Substance: VITAMIN A
  5. CYANOCOBALAMIN. [Concomitant]
     Active Substance: CYANOCOBALAMIN
  6. VITAMIN B COMPLEX [Concomitant]
     Active Substance: CYANOCOBALAMIN\DEXPANTHENOL\NIACINAMIDE\PYRIDOXINE HYDROCHLORIDE\RIBOFLAVIN 5^-PHOSPHATE SODIUM\THIAMINE HYDROCHLORIDE\VITAMIN B COMPLEX
  7. VITAMIN D [Concomitant]
     Active Substance: CHOLECALCIFEROL
  8. VITAMIN C [Concomitant]
     Active Substance: ASCORBIC ACID
  9. TEA [Concomitant]
     Active Substance: TEA LEAF
  10. IMBRUVICA [Suspect]
     Active Substance: IBRUTINIB
     Indication: LYMPHOMA
     Route: 048
     Dates: start: 20150707

REACTIONS (12)
  - Off label use [Not Recovered/Not Resolved]
  - Limb discomfort [Unknown]
  - Disorientation [Not Recovered/Not Resolved]
  - Aphasia [Recovered/Resolved]
  - Product use issue [Not Recovered/Not Resolved]
  - Insomnia [Unknown]
  - Incorrect dose administered [Not Recovered/Not Resolved]
  - Headache [Recovering/Resolving]
  - Hypoaesthesia [Unknown]
  - Dyspnoea [Unknown]
  - Fatigue [Unknown]
  - Discomfort [Unknown]

NARRATIVE: CASE EVENT DATE: 2015
